FAERS Safety Report 18850834 (Version 1)
Quarter: 2021Q1

REPORT INFORMATION
  Report Type: Report from Study
  Country: US (occurrence: US)
  Receive Date: 20210205
  Receipt Date: 20210205
  Transmission Date: 20210420
  Serious: No
  Sender: FDA-Public Use
  Company Number: US-ACADIA PHARMACEUTICALS INC.-ACA-2021-PIM-000316

PATIENT
  Age: 56 Year
  Sex: Female

DRUGS (1)
  1. NUPLAZID [Suspect]
     Active Substance: PIMAVANSERIN TARTRATE

REACTIONS (5)
  - Metabolic function test abnormal [Unknown]
  - Sedation [Unknown]
  - Orthostatic hypotension [Unknown]
  - Cognitive disorder [Unknown]
  - Motor dysfunction [Unknown]
